FAERS Safety Report 6576352-3 (Version None)
Quarter: 2010Q1

REPORT INFORMATION
  Report Type: 
  Country: None (occurrence: None)
  Receive Date: 20100210
  Receipt Date: 20091208
  Transmission Date: 20100710
  Serious: No
  Sender: FDA-Public Use
  Company Number: A0834610A

PATIENT
  Sex: Female

DRUGS (2)
  1. OLUX E [Suspect]
     Route: 061
     Dates: start: 20080801
  2. SHAMPOO [Concomitant]

REACTIONS (2)
  - DRUG EXPOSURE DURING PREGNANCY [None]
  - DRUG INEFFECTIVE [None]
